FAERS Safety Report 7060551-0 (Version None)
Quarter: 2010Q4

REPORT INFORMATION
  Report Type: 
  Country: None (occurrence: None)
  Receive Date: 20101025
  Receipt Date: 20101012
  Transmission Date: 20110411
  Serious: Yes (Hospitalization, Disabling, Other)
  Sender: FDA-Public Use
  Company Number: US-ELI_LILLY_AND_COMPANY-US201003002129

PATIENT
  Sex: Female

DRUGS (21)
  1. FORTEO [Suspect]
     Indication: OSTEOPOROSIS
     Dosage: 20 UG, DAILY (1/D)
     Dates: start: 20090701, end: 20101007
  2. LETAIRIS [Concomitant]
  3. DARVON [Concomitant]
     Dates: start: 20090701
  4. LIPITOR [Concomitant]
  5. IMDUR [Concomitant]
  6. NITROGLYCERIN [Concomitant]
  7. ALBUTEROL [Concomitant]
  8. FUROSEMIDE [Concomitant]
  9. HYDROCHLOROTHIAZIDE [Concomitant]
  10. PLAVIX [Concomitant]
  11. TOPROL-XL [Concomitant]
  12. NEXIUM [Concomitant]
  13. NORVASC [Concomitant]
  14. ASPIRIN [Concomitant]
     Dosage: 81 MG, UNK
  15. LEVOTHYROXINE [Concomitant]
  16. OXYGEN [Concomitant]
  17. CALCIUM CITRATE WITH VITAMIN D [Concomitant]
  18. DOCUSATE [Concomitant]
  19. FLUTICASONE PROPIONATE [Concomitant]
     Route: 045
  20. DIOVAN [Concomitant]
  21. VITAMIN D [Concomitant]

REACTIONS (7)
  - BLOOD PRESSURE DECREASED [None]
  - DYSPNOEA [None]
  - FLUID RETENTION [None]
  - LUNG NEOPLASM MALIGNANT [None]
  - PULMONARY ARTERIAL HYPERTENSION [None]
  - PULMONARY MASS [None]
  - SWELLING [None]
